FAERS Safety Report 8248203-2 (Version None)
Quarter: 2012Q1

REPORT INFORMATION
  Report Type: 
  Country: None (occurrence: None)
  Receive Date: 20120330
  Receipt Date: 20081217
  Transmission Date: 20120608
  Serious: Yes (Death, Hospitalization)
  Sender: FDA-Public Use
  Company Number: IT-CELGENEUS-083-21880-12010895

PATIENT

DRUGS (2)
  1. AUGMENTIN '125' [Concomitant]
     Dosage: 3 GRAM
     Route: 048
     Dates: start: 20081211, end: 20081214
  2. REVLIMID [Suspect]
     Indication: MYELOMA RECURRENCE
     Route: 048

REACTIONS (2)
  - PNEUMONITIS [None]
  - PYREXIA [None]
